FAERS Safety Report 8928109 (Version 2)
Quarter: 2013Q2

REPORT INFORMATION
  Report Type: Spontaneous
  Country: US (occurrence: US)
  Receive Date: 20121128
  Receipt Date: 20130520
  Transmission Date: 20140414
  Serious: Yes (Hospitalization)
  Sender: FDA-Public Use
  Company Number: US-BIOGENIDEC-2012BI054507

PATIENT
  Age: 56 Year
  Sex: Female

DRUGS (4)
  1. NEURONTIN [Concomitant]
     Indication: NEURALGIA
  2. TYSABRI [Suspect]
     Indication: MULTIPLE SCLEROSIS
     Route: 042
     Dates: start: 20120821, end: 20121113
  3. CYMBALTA [Concomitant]
     Indication: DEPRESSION
     Dates: start: 2009
  4. KEPPRA [Concomitant]
     Indication: HEADACHE

REACTIONS (5)
  - Dyspnoea [Recovered/Resolved]
  - Chest pain [Recovered/Resolved]
  - Cardiac disorder [Unknown]
  - Heart rate increased [Recovered/Resolved]
  - Nausea [Recovered/Resolved]
